FAERS Safety Report 9192687 (Version 1)
Quarter: 2013Q1

REPORT INFORMATION
  Report Type: Spontaneous
  Country: CH (occurrence: CH)
  Receive Date: 20130327
  Receipt Date: 20130327
  Transmission Date: 20140127
  Serious: Yes (Hospitalization, Other)
  Sender: FDA-Public Use
  Company Number: CH-ELI_LILLY_AND_COMPANY-CH201303009099

PATIENT
  Age: 51 Year
  Sex: Female

DRUGS (5)
  1. CYMBALTA [Suspect]
     Indication: DEPRESSION
     Dosage: 90 MG, QD
     Route: 048
     Dates: end: 20130225
  2. PRAZINE [Interacting]
     Dosage: 25 MG, TID
     Dates: start: 201301
  3. DALMADORM [Concomitant]
     Dosage: 15 MG, BID
  4. AKINETON                           /00079502/ [Concomitant]
     Dosage: 2 MG, QD
     Dates: start: 201301, end: 201302
  5. BROMAZEPAM [Concomitant]
     Dosage: UNK
     Dates: start: 20130221

REACTIONS (15)
  - Altered state of consciousness [Unknown]
  - Psychomotor retardation [Unknown]
  - Dysarthria [Unknown]
  - Confusional state [Unknown]
  - Tremor [Unknown]
  - Pyrexia [Recovered/Resolved]
  - Tachycardia [Recovered/Resolved]
  - Liver injury [Unknown]
  - Renal failure acute [Unknown]
  - Systemic inflammatory response syndrome [Unknown]
  - Serotonin syndrome [Unknown]
  - Musculoskeletal stiffness [Not Recovered/Not Resolved]
  - Disorientation [Not Recovered/Not Resolved]
  - Hyperhidrosis [Recovering/Resolving]
  - Drug interaction [Unknown]
